FAERS Safety Report 11863704 (Version 2)
Quarter: 2016Q1

REPORT INFORMATION
  Report Type: Spontaneous
  Country: US (occurrence: US)
  Receive Date: 20151223
  Receipt Date: 20160106
  Transmission Date: 20160526
  Serious: Yes (Other)
  Sender: FDA-Public Use
  Company Number: US-PFIZER INC-2015446649

PATIENT
  Age: 44 Year
  Sex: Female
  Weight: 66 kg

DRUGS (7)
  1. SCOPOLAMINE [Concomitant]
     Active Substance: SCOPOLAMINE
     Indication: NAUSEA
     Dosage: UNK
     Dates: start: 201511
  2. TOPAMAX [Concomitant]
     Active Substance: TOPIRAMATE
     Indication: MIGRAINE PROPHYLAXIS
  3. TOPAMAX [Concomitant]
     Active Substance: TOPIRAMATE
     Indication: FIBROMYALGIA
     Dosage: 50 MG, 1X/DAY
  4. WELLBUTRIN [Concomitant]
     Active Substance: BUPROPION HYDROCHLORIDE
     Indication: DEPRESSION
     Dosage: 200 MG, 2X/DAY
  5. NATURE-THROID [Concomitant]
     Active Substance: THYROID, PORCINE
     Indication: HYPOTHYROIDISM
     Dosage: 65 MG, 1X/DAY
  6. RELPAX [Suspect]
     Active Substance: ELETRIPTAN HYDROBROMIDE
     Indication: MIGRAINE
     Dosage: 40 MG, UNK
     Route: 048
     Dates: start: 201511, end: 20151212
  7. MIRCETTE [Concomitant]
     Active Substance: DESOGESTREL\ETHINYL ESTRADIOL
     Indication: CONTRACEPTION
     Dosage: 1 DF, DAILY

REACTIONS (4)
  - Disturbance in attention [Not Recovered/Not Resolved]
  - Anxiety [Not Recovered/Not Resolved]
  - Nervousness [Not Recovered/Not Resolved]
  - Panic attack [Not Recovered/Not Resolved]

NARRATIVE: CASE EVENT DATE: 20151212
